FAERS Safety Report 6374363-4 (Version None)
Quarter: 2009Q3

REPORT INFORMATION
  Report Type: 
  Country: None (occurrence: None)
  Receive Date: 20090924
  Receipt Date: 20081124
  Transmission Date: 20100115
  Serious: No
  Sender: FDA-Public Use
  Company Number: A0755409A

PATIENT
  Age: 45 Year
  Sex: Male
  Weight: 65.9 kg

DRUGS (1)
  1. EPZICOM [Suspect]
     Indication: HIV INFECTION
     Dosage: 900MG UNKNOWN
     Route: 048
     Dates: start: 20080822, end: 20081111

REACTIONS (1)
  - RASH [None]
